FAERS Safety Report 15362082 (Version 2)
Quarter: 2018Q4

REPORT INFORMATION
  Report Type: Spontaneous
  Country: CA (occurrence: CA)
  Receive Date: 20180907
  Receipt Date: 20180914
  Transmission Date: 20190204
  Serious: Yes (Other)
  Sender: FDA-Public Use
  Company Number: CA-IPSEN BIOPHARMACEUTICALS, INC.-2018-13342

PATIENT
  Age: 73 Year
  Sex: Female

DRUGS (3)
  1. SOMATULINA AUTOGEL 60MG [Suspect]
     Active Substance: LANREOTIDE ACETATE
     Indication: CARCINOID TUMOUR
     Dosage: 60 MG
     Route: 058
     Dates: start: 20180723
  2. WARFARIN [Suspect]
     Active Substance: WARFARIN
     Route: 048
  3. WARFARIN [Suspect]
     Active Substance: WARFARIN
     Indication: THROMBOSIS
     Route: 048

REACTIONS (2)
  - International normalised ratio increased [Unknown]
  - International normalised ratio fluctuation [Unknown]

NARRATIVE: CASE EVENT DATE: 20180820
